FAERS Safety Report 5386692-1 (Version None)
Quarter: 2007Q3

REPORT INFORMATION
  Report Type: 
  Country: None (occurrence: None)
  Receive Date: 20070713
  Receipt Date: 20050113
  Transmission Date: 20080115
  Serious: Yes (Hospitalization)
  Sender: FDA-Public Use
  Company Number: FR-ROCHE-392520

PATIENT
  Age: 49 Year
  Sex: Male

DRUGS (5)
  1. PEG-INTERFERON ALFA 2A (RO 25-8310) [Suspect]
     Route: 058
     Dates: start: 20040513, end: 20041007
  2. PAROXETINE HCL [Concomitant]
     Dates: start: 19980101
  3. NOVONORM [Concomitant]
     Dates: start: 20000921
  4. SOTALOL HCL [Concomitant]
     Dates: start: 20020503
  5. SOLU-MEDROL [Concomitant]
     Dosage: FOR MOUTH WASHING.
     Dates: start: 20040819, end: 20041021

REACTIONS (1)
  - LICHEN PLANUS [None]
